FAERS Safety Report 9128990 (Version 1)
Quarter: 2013Q1

REPORT INFORMATION
  Report Type: Spontaneous
  Country: MX (occurrence: MX)
  Receive Date: 20130228
  Receipt Date: 20130228
  Transmission Date: 20140127
  Serious: Yes (Hospitalization)
  Sender: FDA-Public Use
  Company Number: MX-B.I. PHARMACEUTICALS,INC./RIDGEFIELD-2013-MX-00045MX

PATIENT
  Age: 73 Year
  Sex: Male

DRUGS (6)
  1. DABIGATRAN [Suspect]
     Indication: EMBOLISM ARTERIAL
     Dosage: 300 MG
     Route: 048
     Dates: start: 201006
  2. DABIGATRAN [Suspect]
     Dosage: 150 MG
     Route: 048
     Dates: start: 201211
  3. ADEPSIQUE [Concomitant]
     Indication: DEPRESSION
     Dosage: 25 MG
     Route: 048
  4. LORATADINE [Concomitant]
     Indication: DERMATITIS
     Dosage: 10 MG
     Route: 048
  5. ENALAPRIL [Concomitant]
     Indication: HYPERTENSION
     Dosage: 20 MG
     Route: 048
  6. ISOSORBIDE [Concomitant]
     Indication: HYPERTENSION
     Dosage: ONE TABLET EVERY 24HRS
     Route: 048

REACTIONS (3)
  - Arterial insufficiency [Recovered/Resolved]
  - Haematuria [Recovered/Resolved]
  - Diabetes mellitus [Not Recovered/Not Resolved]
